FAERS Safety Report 4638274-4 (Version None)
Quarter: 2005Q2

REPORT INFORMATION
  Report Type: 
  Country: None (occurrence: None)
  Receive Date: 20050418
  Receipt Date: 20050404
  Transmission Date: 20051028
  Serious: Yes (Other)
  Sender: FDA-Public Use
  Company Number: 200511347BCC

PATIENT
  Age: 83 Year
  Sex: Female
  Weight: 54.4316 kg

DRUGS (15)
  1. ALEVE [Suspect]
     Indication: PAIN
     Dosage: 440 MG, QD, ORAL
     Route: 048
     Dates: start: 19990101, end: 20041226
  2. FORTEO [Concomitant]
  3. NEURONTIN [Concomitant]
  4. ARICEPT [Concomitant]
  5. TOPROL-XL [Concomitant]
  6. DITROPAN XL [Concomitant]
  7. LEVOXYL [Concomitant]
  8. PLAVIX [Concomitant]
  9. STORE BRAND ASPRIN [Concomitant]
  10. TEMAZEPAM [Concomitant]
  11. HALOPERIDOL [Concomitant]
  12. OS-CAL D [Concomitant]
  13. THERAGRAN-M [Concomitant]
  14. VITAMIN C [Concomitant]
  15. VITAMIN E [Concomitant]

REACTIONS (2)
  - BACK PAIN [None]
  - LOSS OF CONSCIOUSNESS [None]
